FAERS Safety Report 10492904 (Version 1)
Quarter: 2014Q4

REPORT INFORMATION
  Report Type: Spontaneous
  Country: US (occurrence: US)
  Receive Date: 20141002
  Receipt Date: 20141002
  Transmission Date: 20150528
  Serious: No
  Sender: FDA-Public Use
  Company Number: US-GLAXOSMITHKLINE-A1076762A

PATIENT
  Age: 64 Year
  Sex: Male

DRUGS (5)
  1. VALIUM [Concomitant]
     Active Substance: DIAZEPAM
  2. ADVAIR HFA [Suspect]
     Active Substance: FLUTICASONE PROPIONATE\SALMETEROL XINAFOATE
     Indication: CHRONIC OBSTRUCTIVE PULMONARY DISEASE
     Dosage: 1PUFF TWICE PER DAY
     Route: 055
  3. OMEPRAZOLE. [Concomitant]
     Active Substance: OMEPRAZOLE
  4. NORCO [Concomitant]
     Active Substance: ACETAMINOPHEN\HYDROCODONE BITARTRATE
  5. SIMVASTATIN. [Concomitant]
     Active Substance: SIMVASTATIN

REACTIONS (2)
  - Dyspnoea [Unknown]
  - Product quality issue [Unknown]

NARRATIVE: CASE EVENT DATE: 20140610
